FAERS Safety Report 11198599 (Version 1)
Quarter: 2015Q2

REPORT INFORMATION
  Report Type: Spontaneous
  Country: US (occurrence: None)
  Receive Date: 20150616
  Receipt Date: 20150616
  Transmission Date: 20150821
  Serious: Yes (Hospitalization)
  Sender: FDA-Public Use
  Company Number: 2015HINLIT0495

PATIENT
  Age: 69 Year
  Sex: Male

DRUGS (3)
  1. LEVOFLOXACIN (LEVOFLOXACIN) UNKNOWN, 1000MG [Suspect]
     Active Substance: LEVOFLOXACIN
     Indication: EPIDIDYMITIS
  2. LEVOFLOXACIN (LEVOFLOXACIN) UNKNOWN, 1000MG [Suspect]
     Active Substance: LEVOFLOXACIN
     Indication: ORCHITIS
  3. FLUOROQUINOLONE (FLUOROQUINOLONE) UNKNOWN [Suspect]
     Active Substance: UNSPECIFIED INGREDIENT
     Indication: PRODUCT USED FOR UNKNOWN INDICATION

REACTIONS (8)
  - Leukocytosis [None]
  - Tendon rupture [None]
  - Erythema [None]
  - Muscular weakness [None]
  - Chills [None]
  - Pain in extremity [None]
  - Pyrexia [None]
  - Night sweats [None]
